FAERS Safety Report 17454891 (Version 1)
Quarter: 2020Q1

REPORT INFORMATION
  Report Type: Spontaneous
  Country: US (occurrence: US)
  Receive Date: 20200225
  Receipt Date: 20200225
  Transmission Date: 20200409
  Serious: No
  Sender: FDA-Public Use
  Company Number: US-JNJFOC-20200202386

PATIENT
  Sex: Male
  Weight: 77.18 kg

DRUGS (1)
  1. PEPCID COMPLETE [Suspect]
     Active Substance: CALCIUM CARBONATE\FAMOTIDINE\MAGNESIUM HYDROXIDE
     Indication: DYSPEPSIA
     Dosage: 1 TABLET ONCE A DAY FOR ABOUT 2-3 WEEKS
     Route: 048

REACTIONS (1)
  - Diarrhoea [Not Recovered/Not Resolved]
